FAERS Safety Report 23757175 (Version 1)
Quarter: 2024Q2

REPORT INFORMATION
  Report Type: Spontaneous
  Country: US (occurrence: None)
  Receive Date: 20240418
  Receipt Date: 20240418
  Transmission Date: 20240715
  Serious: No
  Sender: FDA-Public Use
  Company Number: None

PATIENT
  Sex: Male

DRUGS (4)
  1. OPSUMIT [Suspect]
     Active Substance: MACITENTAN
     Indication: Pulmonary arterial hypertension
     Dosage: FREQUENCY : DAILY;?
     Route: 048
     Dates: start: 202402
  2. MYCOPHENOLATE VIOFETIL [Concomitant]
  3. TACROLIMUS(ASCEND) [Concomitant]
  4. TYVASO DPI VIAINT KIT PWD [Concomitant]

REACTIONS (1)
  - Liver transplant [None]
